FAERS Safety Report 24766361 (Version 1)
Quarter: 2024Q4

REPORT INFORMATION
  Report Type: Report from Study
  Country: US (occurrence: US)
  Receive Date: 20241223
  Receipt Date: 20241223
  Transmission Date: 20250115
  Serious: Yes (Other)
  Sender: UCB
  Company Number: US-UCBSA-2024066270

PATIENT
  Sex: Male

DRUGS (15)
  1. ROTIGOTINE [Suspect]
     Active Substance: ROTIGOTINE
     Indication: Parkinson^s disease
     Dosage: 6 MILLIGRAM, ONCE DAILY (QD)
     Route: 062
     Dates: start: 20240320
  2. SEROQUEL [Suspect]
     Active Substance: QUETIAPINE FUMARATE
     Indication: Sleep disorder
     Dosage: 50 MILLIGRAM, 1 TABLET, ONCE DAILY (QD)
     Route: 048
     Dates: start: 20240611
  3. QUETIAPINE [Suspect]
     Active Substance: QUETIAPINE
     Indication: Product used for unknown indication
     Dosage: 50 MILLIGRAM
  4. PANTOPRAZOLE [Concomitant]
     Active Substance: PANTOPRAZOLE
     Indication: Product used for unknown indication
     Dosage: 40 MILLIGRAM, 1 TABLET, ONCE DAILY (QD)
     Route: 048
     Dates: start: 20240918
  5. SILDENAFIL [Concomitant]
     Active Substance: SILDENAFIL
     Indication: Sexual dysfunction
     Dosage: 100 MILLIGRAM, ONE TIME A DAY AS NEEDED (PRN) ONE HOUR PRIOR TO SEXUAL ACTIVITY
     Route: 048
     Dates: start: 20240723
  6. ROSUVASTATIN [Concomitant]
     Active Substance: ROSUVASTATIN
     Indication: Product used for unknown indication
     Dosage: 20 MILLIGRAM, 1 TABLET, ONCE DAILY (QD)
     Route: 048
     Dates: start: 20241019
  7. ROPINIROLE [Concomitant]
     Active Substance: ROPINIROLE
     Indication: Product used for unknown indication
     Dosage: 2 MILLIGRAM, 1 TABLET, ONCE DAILY (QD)
     Route: 048
     Dates: start: 20240611
  8. IBUPROFEN [Concomitant]
     Active Substance: IBUPROFEN
     Indication: Back pain
     Dosage: 600 MILLIGRAM, 1 TABLET EVERY 8 HOURS
     Route: 048
     Dates: start: 20241017
  9. LEVOTHYROXINE [Concomitant]
     Active Substance: LEVOTHYROXINE
     Indication: Product used for unknown indication
     Dosage: 75 MICROGRAM, 1 TABLET, ONCE DAILY (QD)
     Route: 048
     Dates: start: 20240710
  10. EZETIMIBE [Concomitant]
     Active Substance: EZETIMIBE
     Indication: Product used for unknown indication
     Dosage: 1 TABLET, ONCE DAILY (QD)
     Dates: start: 20240813
  11. TAMSULOSIN [Concomitant]
     Active Substance: TAMSULOSIN
     Indication: Product used for unknown indication
     Dosage: 0.24 MILLIGRAM, ONCE DAILY (QD)
     Route: 048
     Dates: start: 20241019
  12. ASPIRIN [Concomitant]
     Active Substance: ASPIRIN
     Indication: Product used for unknown indication
     Dosage: 81 MILLIGRAM, 1 TABLET, ONCE DAILY (QD)
     Route: 048
     Dates: start: 20240130
  13. HYOSCYAMINE [Concomitant]
     Active Substance: HYOSCYAMINE
     Indication: Product used for unknown indication
     Dosage: 0.25 MILLIGRAM, EVERY 4 HOURS
     Route: 060
     Dates: start: 20230808
  14. CARBIDOPA\LEVODOPA [Concomitant]
     Active Substance: CARBIDOPA\LEVODOPA
     Indication: Product used for unknown indication
     Dosage: 25 MG/ 250 MG, 1 TABLET, 3X/DAY (TID)
     Route: 048
     Dates: start: 20240611
  15. LACTULOSE [Concomitant]
     Active Substance: LACTULOSE
     Indication: Product used for unknown indication
     Dosage: 30 MILLILITER, 3X/DAY (TID)
     Route: 048
     Dates: start: 20240914

REACTIONS (6)
  - Parkinson^s disease [Unknown]
  - Neck pain [Unknown]
  - Rhinorrhoea [Unknown]
  - Chills [Unknown]
  - Depression [Unknown]
  - Oesophageal dilation procedure [Unknown]

NARRATIVE: CASE EVENT DATE: 20240101
